FAERS Safety Report 22898551 (Version 2)
Quarter: 2023Q4

REPORT INFORMATION
  Report Type: Report from Study
  Country: US (occurrence: US)
  Receive Date: 20230904
  Receipt Date: 20231005
  Transmission Date: 20240109
  Serious: Yes (Other)
  Sender: FDA-Public Use
  Company Number: US-002147023-NVSC2023US188415

PATIENT
  Age: 34 Year
  Sex: Female
  Weight: 126.6 kg

DRUGS (1)
  1. COSENTYX [Suspect]
     Active Substance: SECUKINUMAB
     Indication: Psoriasis
     Dosage: 300 MG, Q4W
     Route: 058
     Dates: start: 20180106, end: 20180405

REACTIONS (6)
  - Gastrointestinal stromal tumour [Unknown]
  - Ovarian cancer [Recovered/Resolved]
  - Adnexa uteri cyst [Unknown]
  - Liver disorder [Unknown]
  - Ovarian disorder [Unknown]
  - Drug effect less than expected [Unknown]

NARRATIVE: CASE EVENT DATE: 20221116
